FAERS Safety Report 4949710-8 (Version None)
Quarter: 2006Q1

REPORT INFORMATION
  Report Type: 
  Country: None (occurrence: None)
  Receive Date: 20060315
  Receipt Date: 20060224
  Transmission Date: 20060701
  Serious: Yes (Hospitalization, Other)
  Sender: FDA-Public Use
  Company Number: US200602005229

PATIENT
  Age: 58 Year
  Sex: Female

DRUGS (3)
  1. FORTEO [Suspect]
     Indication: OSTEOPOROSIS
     Dates: start: 20050801
  2. FORTEO [Concomitant]
  3. WARFARIN [Concomitant]

REACTIONS (5)
  - ABDOMINAL HAEMATOMA [None]
  - BACTERIAL SEPSIS [None]
  - CATHETER SEPSIS [None]
  - CONTUSION [None]
  - PHARMACEUTICAL PRODUCT COMPLAINT [None]
